FAERS Safety Report 20415295 (Version 1)
Quarter: 2022Q1

REPORT INFORMATION
  Report Type: Report from Study
  Country: IN (occurrence: IN)
  Receive Date: 20220202
  Receipt Date: 20220202
  Transmission Date: 20220423
  Serious: Yes (Death)
  Sender: FDA-Public Use
  Company Number: IN-NOVARTISPH-PHHY2019IN101940

PATIENT
  Age: 57 Year
  Sex: Female

DRUGS (2)
  1. SACUBITRIL\VALSARTAN [Suspect]
     Active Substance: SACUBITRIL\VALSARTAN
     Indication: Cardiac failure
     Dosage: 0.25 DF, BID (100 MG)
     Route: 048
     Dates: start: 20190429
  2. SACUBITRIL\VALSARTAN [Suspect]
     Active Substance: SACUBITRIL\VALSARTAN
     Indication: Chronic myeloid leukaemia

REACTIONS (4)
  - Myocardial infarction [Fatal]
  - Product use in unapproved indication [Unknown]
  - Wrong technique in product usage process [Unknown]
  - Prescribed underdose [Unknown]

NARRATIVE: CASE EVENT DATE: 20190429
